FAERS Safety Report 10095618 (Version 1)
Quarter: 2014Q2

REPORT INFORMATION
  Report Type: Spontaneous
  Country: BR (occurrence: BR)
  Receive Date: 20140422
  Receipt Date: 20140422
  Transmission Date: 20141212
  Serious: Yes (Hospitalization)
  Sender: FDA-Public Use
  Company Number: BR-GLAXOSMITHKLINE-B0984093A

PATIENT
  Sex: Female

DRUGS (3)
  1. BENLYSTA [Suspect]
     Indication: PRODUCT USED FOR UNKNOWN INDICATION
     Route: 065
     Dates: start: 201401
  2. TOPIRAMATE [Suspect]
     Indication: MIGRAINE
     Route: 065
  3. UNKNOWN [Concomitant]

REACTIONS (3)
  - Decreased appetite [Unknown]
  - Drug ineffective [Recovered/Resolved]
  - Drug administration error [Unknown]
